FAERS Safety Report 19500163 (Version 1)
Quarter: 2021Q3

REPORT INFORMATION
  Report Type: Spontaneous
  Country: US (occurrence: US)
  Receive Date: 20210707
  Receipt Date: 20210707
  Transmission Date: 20211014
  Serious: No
  Sender: FDA-Public Use
  Company Number: US-JNJFOC-20210663597

PATIENT
  Age: 88 Year
  Sex: Male

DRUGS (3)
  1. XARELTO [Suspect]
     Active Substance: RIVAROXABAN
     Indication: PULMONARY EMBOLISM
     Route: 048
     Dates: start: 2006, end: 20210621
  2. XARELTO [Suspect]
     Active Substance: RIVAROXABAN
     Indication: CEREBROVASCULAR ACCIDENT
  3. XARELTO [Suspect]
     Active Substance: RIVAROXABAN
     Indication: TRANSIENT ISCHAEMIC ATTACK

REACTIONS (5)
  - Haematuria [Unknown]
  - Skin haemorrhage [Unknown]
  - Extremity necrosis [Recovering/Resolving]
  - Tooth extraction [Unknown]
  - Wound [Recovered/Resolved]

NARRATIVE: CASE EVENT DATE: 20210621
